FAERS Safety Report 23563889 (Version 9)
Quarter: 2025Q2

REPORT INFORMATION
  Report Type: Report from Study
  Country: US (occurrence: US)
  Receive Date: 20240226
  Receipt Date: 20250620
  Transmission Date: 20250716
  Serious: Yes (Hospitalization, Other)
  Sender: TAKEDA
  Company Number: US-TAKEDA-2024TUS014423

PATIENT
  Sex: Female
  Weight: 88 kg

DRUGS (39)
  1. HUMAN C1-ESTERASE INHIBITOR [Suspect]
     Active Substance: HUMAN C1-ESTERASE INHIBITOR
     Indication: Immune system disorder
     Dosage: 1000 INTERNATIONAL UNIT, Q72H
     Dates: start: 20240205
  2. HUMAN C1-ESTERASE INHIBITOR [Suspect]
     Active Substance: HUMAN C1-ESTERASE INHIBITOR
     Dosage: 1000 INTERNATIONAL UNIT, Q72H
     Dates: start: 20240206
  3. HUMAN C1-ESTERASE INHIBITOR [Suspect]
     Active Substance: HUMAN C1-ESTERASE INHIBITOR
  4. TAKHZYRO [Suspect]
     Active Substance: LANADELUMAB-FLYO
     Indication: Immune system disorder
     Dosage: 300 MILLIGRAM, Q2WEEKS
     Dates: start: 20240402
  5. TAKHZYRO [Suspect]
     Active Substance: LANADELUMAB-FLYO
     Dosage: 300 MILLIGRAM, 3/MONTH
  6. TAKHZYRO [Suspect]
     Active Substance: LANADELUMAB-FLYO
     Dosage: 300 MILLIGRAM, MONTHLY
  7. TAKHZYRO [Suspect]
     Active Substance: LANADELUMAB-FLYO
     Dosage: 300 MILLIGRAM, Q2WEEKS
  8. RUCONEST [Suspect]
     Active Substance: CONESTAT ALFA
     Indication: Immune system disorder
  9. HEPARIN [Concomitant]
     Active Substance: HEPARIN SODIUM
  10. SODIUM CHLORIDE [Concomitant]
     Active Substance: SODIUM CHLORIDE
  11. STERILE WATER [Concomitant]
     Active Substance: WATER
  12. EPINEPHRINE [Concomitant]
     Active Substance: EPINEPHRINE
  13. DIPHENHYDRAMINE [Concomitant]
     Active Substance: DIPHENHYDRAMINE
  14. DIPHENHYDRAMINE HYDROCHLORIDE [Concomitant]
     Active Substance: DIPHENHYDRAMINE HYDROCHLORIDE
  15. MESTINON [Concomitant]
     Active Substance: PYRIDOSTIGMINE BROMIDE
  16. TRETINOIN [Concomitant]
     Active Substance: TRETINOIN
  17. NALTREXONE [Concomitant]
     Active Substance: NALTREXONE
  18. VITAMIN B12 [Concomitant]
     Active Substance: CYANOCOBALAMIN
  19. ELIQUIS [Concomitant]
     Active Substance: APIXABAN
  20. LORAZEPAM [Concomitant]
     Active Substance: LORAZEPAM
  21. BENADRYL [Concomitant]
     Active Substance: DIPHENHYDRAMINE HYDROCHLORIDE
  22. ZAFIRLUKAST [Concomitant]
     Active Substance: ZAFIRLUKAST
  23. ZEMAIRA [Concomitant]
     Active Substance: .ALPHA.1-PROTEINASE INHIBITOR HUMAN
  24. PENTOXIFYLLINE [Concomitant]
     Active Substance: PENTOXIFYLLINE
  25. GABAPENTIN [Concomitant]
     Active Substance: GABAPENTIN
  26. VALCYTE [Concomitant]
     Active Substance: VALGANCICLOVIR HYDROCHLORIDE
  27. TRULANCE [Concomitant]
     Active Substance: PLECANATIDE
  28. XIFAXAN [Concomitant]
     Active Substance: RIFAXIMIN
  29. PROMETHAZINE [Concomitant]
     Active Substance: PROMETHAZINE HYDROCHLORIDE
  30. URSODIOL [Concomitant]
     Active Substance: URSODIOL
  31. GAMMAGARD [Concomitant]
     Active Substance: HUMAN IMMUNOGLOBULIN G
  32. BENADRYL ALLERGY [Concomitant]
     Active Substance: DIPHENHYDRAMINE HYDROCHLORIDE
  33. ASCENIV [Concomitant]
     Active Substance: HUMAN IMMUNOGLOBULIN G
  34. SODIUM CHLORIDE [Concomitant]
     Active Substance: SODIUM CHLORIDE
  35. PROGESTERONE [Concomitant]
     Active Substance: PROGESTERONE
  36. NURTEC ODT [Concomitant]
     Active Substance: RIMEGEPANT SULFATE
  37. PROMETHAZINE HYDROCHLORIDE [Concomitant]
     Active Substance: PROMETHAZINE HYDROCHLORIDE
  38. NALTREXONE HYDROCHLORIDE [Concomitant]
     Active Substance: NALTREXONE HYDROCHLORIDE
  39. VITAMIN B [Concomitant]
     Active Substance: VITAMIN B

REACTIONS (15)
  - General physical health deterioration [Unknown]
  - Meningitis aseptic [Recovered/Resolved]
  - Brain oedema [Recovered/Resolved]
  - Pneumonia [Unknown]
  - Hormone level abnormal [Unknown]
  - Stress [Unknown]
  - Infection [Not Recovered/Not Resolved]
  - Traumatic lung injury [Unknown]
  - Complication associated with device [Recovered/Resolved]
  - Product distribution issue [Unknown]
  - Product use issue [Unknown]
  - Motor developmental delay [Unknown]
  - Thinking abnormal [Unknown]
  - Anxiety [Unknown]
  - Hereditary angioedema [Unknown]
